FAERS Safety Report 25196935 (Version 3)
Quarter: 2025Q2

REPORT INFORMATION
  Report Type: Spontaneous
  Country: PT (occurrence: PT)
  Receive Date: 20250415
  Receipt Date: 20250508
  Transmission Date: 20250716
  Serious: Yes (Hospitalization, Other)
  Sender: TAKEDA
  Company Number: PT-TAKEDA-2025TUS036062

PATIENT
  Age: 43 Year
  Sex: Female

DRUGS (1)
  1. MESALAMINE [Suspect]
     Active Substance: MESALAMINE
     Indication: Colitis ulcerative
     Dosage: 3 GRAM, QD

REACTIONS (2)
  - Dilated cardiomyopathy [Recovering/Resolving]
  - Cardiac failure acute [Recovered/Resolved]
